FAERS Safety Report 9986364 (Version 1)
Quarter: 2014Q1

REPORT INFORMATION
  Report Type: Report from Study
  Country: US (occurrence: US)
  Receive Date: 20140307
  Receipt Date: 20140307
  Transmission Date: 20141002
  Serious: No
  Sender: FDA-Public Use
  Company Number: US-ABBVIE-13P-163-1088061-00

PATIENT
  Age: 61 Year
  Sex: Male

DRUGS (7)
  1. HUMIRA [Suspect]
     Indication: COLITIS ULCERATIVE
     Dates: start: 20130126
  2. PREDNISONE [Concomitant]
     Indication: COLITIS ULCERATIVE
  3. AZATHIOPRINE [Concomitant]
     Indication: COLITIS ULCERATIVE
  4. LIPITOR [Concomitant]
     Indication: BLOOD CHOLESTEROL
  5. TOPROL [Concomitant]
     Indication: CARDIAC DISORDER
  6. BABY ASPIRIN [Concomitant]
     Indication: CARDIAC DISORDER
     Dosage: 1 IN AM, 1 AT BEDTIME
  7. UNKNOWN MEDICATION(S) [Concomitant]
     Indication: SEASONAL ALLERGY

REACTIONS (5)
  - Crohn^s disease [Not Recovered/Not Resolved]
  - Abdominal pain upper [Not Recovered/Not Resolved]
  - Diarrhoea [Not Recovered/Not Resolved]
  - Enteritis infectious [Not Recovered/Not Resolved]
  - Blood glucose increased [Not Recovered/Not Resolved]
